FAERS Safety Report 7618351-6 (Version None)
Quarter: 2011Q3

REPORT INFORMATION
  Report Type: 
  Country: None (occurrence: None)
  Receive Date: 20110718
  Receipt Date: 20110706
  Transmission Date: 20111222
  Serious: Yes (Other)
  Sender: FDA-Public Use
  Company Number: PHHY2011JP60691

PATIENT
  Age: 46 Year
  Sex: Male

DRUGS (1)
  1. CYCLOSPORINE [Suspect]
     Indication: APLASIA PURE RED CELL
     Dosage: 200 MG, DAILY
     Route: 048

REACTIONS (3)
  - PYREXIA [None]
  - DEEP VEIN THROMBOSIS [None]
  - RETINAL VEIN OCCLUSION [None]
